FAERS Safety Report 11443097 (Version 1)
Quarter: 2015Q3

REPORT INFORMATION
  Report Type: Report from Study
  Country: US (occurrence: US)
  Receive Date: 20150901
  Receipt Date: 20150901
  Transmission Date: 20151125
  Serious: Yes (Hospitalization)
  Sender: FDA-Public Use
  Company Number: US-ROCHE-1623206

PATIENT
  Sex: Female
  Weight: 111.68 kg

DRUGS (3)
  1. ANASTROZOLE. [Concomitant]
     Active Substance: ANASTROZOLE
     Indication: BREAST CANCER
     Route: 048
     Dates: start: 201506
  2. PERJETA [Suspect]
     Active Substance: PERTUZUMAB
     Indication: BREAST CANCER
     Route: 042
     Dates: start: 201410, end: 20150205
  3. HERCEPTIN [Suspect]
     Active Substance: TRASTUZUMAB
     Indication: BREAST CANCER
     Route: 042
     Dates: start: 201410

REACTIONS (17)
  - Hypophagia [Recovered/Resolved]
  - Pyrexia [Recovered/Resolved]
  - Cognitive disorder [Recovering/Resolving]
  - Nausea [Recovered/Resolved]
  - Loss of consciousness [Recovered/Resolved]
  - Diarrhoea [Recovered/Resolved]
  - Myalgia [Recovered/Resolved]
  - Pharyngeal oedema [Recovered/Resolved]
  - Rash [Recovered/Resolved]
  - Dyspnoea [Not Recovered/Not Resolved]
  - Fatigue [Not Recovered/Not Resolved]
  - White blood cell count decreased [Recovered/Resolved]
  - Blood potassium decreased [Recovered/Resolved]
  - Alopecia [Recovering/Resolving]
  - Blood sodium decreased [Recovered/Resolved]
  - Asthenia [Recovered/Resolved]
  - Cough [Not Recovered/Not Resolved]

NARRATIVE: CASE EVENT DATE: 201410
